FAERS Safety Report 20736422 (Version 1)
Quarter: 2022Q2

REPORT INFORMATION
  Report Type: Spontaneous
  Country: US (occurrence: None)
  Receive Date: 20220421
  Receipt Date: 20220421
  Transmission Date: 20220720
  Serious: Yes (Hospitalization, Other)
  Sender: FDA-Public Use
  Company Number: US-ROCHE-3073496

PATIENT

DRUGS (1)
  1. CELLCEPT [Suspect]
     Active Substance: MYCOPHENOLATE MOFETIL
     Indication: Myasthenia gravis
     Dosage: NO
     Route: 048
     Dates: start: 2007, end: 2017

REACTIONS (14)
  - Brain neoplasm malignant [Recovered/Resolved]
  - Life support [Recovered/Resolved]
  - Aneurysm [Recovered/Resolved]
  - Pneumonia [Recovered/Resolved]
  - Respiratory arrest [Recovered/Resolved]
  - Asphyxia [Recovered/Resolved]
  - Disability [Not Recovered/Not Resolved]
  - Hemiplegia [Unknown]
  - Fatigue [Recovered/Resolved]
  - Cerebral disorder [Not Recovered/Not Resolved]
  - Pain [Not Recovered/Not Resolved]
  - Nasopharyngitis [Recovered/Resolved]
  - Memory impairment [Not Recovered/Not Resolved]
  - Off label use [Unknown]

NARRATIVE: CASE EVENT DATE: 20070101
